FAERS Safety Report 4620607-6 (Version None)
Quarter: 2005Q1

REPORT INFORMATION
  Report Type: 
  Country: None (occurrence: None)
  Receive Date: 20050324
  Receipt Date: 20050309
  Transmission Date: 20050727
  Serious: Yes (Death)
  Sender: FDA-Public Use
  Company Number: 106159ISR

PATIENT
  Age: 77 Year
  Sex: Female

DRUGS (6)
  1. FLUOROURACIL [Suspect]
     Indication: SKIN CANCER
     Dates: start: 20041213, end: 20050101
  2. ASASANTIN [Concomitant]
  3. NIFEDIPINE [Concomitant]
  4. VERAPAMIL [Concomitant]
  5. FOLIC ACID [Concomitant]
  6. HYDROXOCOBALAMIN HYDROCHLORIDE [Concomitant]

REACTIONS (5)
  - FEELING ABNORMAL [None]
  - GASTROINTESTINAL MUCOSITIS [None]
  - MUCOSAL INFLAMMATION [None]
  - SQUAMOUS CELL CARCINOMA [None]
  - STOMATITIS [None]
